FAERS Safety Report 25394407 (Version 1)
Quarter: 2025Q2

REPORT INFORMATION
  Report Type: Spontaneous
  Country: JP (occurrence: JP)
  Receive Date: 20250604
  Receipt Date: 20250604
  Transmission Date: 20250717
  Serious: Yes (Other)
  Sender: ALKEM
  Company Number: JP-ALKEM LABORATORIES LIMITED-JP-ALKEM-2025-05639

PATIENT
  Age: 8 Decade
  Sex: Female

DRUGS (5)
  1. PREGABALIN [Suspect]
     Active Substance: PREGABALIN
     Indication: Neuralgia
     Dosage: 25 MILLIGRAM, QD
     Route: 065
  2. ARIPIPRAZOLE [Suspect]
     Active Substance: ARIPIPRAZOLE
     Indication: Dementia
     Dosage: 2 MILLIGRAM, QD
     Route: 065
  3. OLANZAPINE [Suspect]
     Active Substance: OLANZAPINE
     Indication: Dementia
     Route: 065
  4. DONEPEZIL [Suspect]
     Active Substance: DONEPEZIL
     Indication: Dementia
     Route: 065
  5. DONEPEZIL [Suspect]
     Active Substance: DONEPEZIL
     Route: 065

REACTIONS (7)
  - Dementia with Lewy bodies [Unknown]
  - Psychotic disorder [Recovered/Resolved]
  - Irritability [Recovered/Resolved]
  - Delusion [Unknown]
  - Hallucination [Unknown]
  - Hypersensitivity [Unknown]
  - Drug ineffective [Unknown]
